FAERS Safety Report 13512235 (Version 1)
Quarter: 2017Q2

REPORT INFORMATION
  Report Type: Spontaneous
  Country: IN (occurrence: IN)
  Receive Date: 20170504
  Receipt Date: 20170504
  Transmission Date: 20170830
  Serious: Yes (Death, Life-Threatening, Hospitalization, Other)
  Sender: FDA-Public Use
  Company Number: IN-BAUSCH-BL-2017-011928

PATIENT
  Sex: Female

DRUGS (3)
  1. PREDNISOLONE. [Suspect]
     Active Substance: PREDNISOLONE
     Indication: IMMUNOSUPPRESSANT DRUG THERAPY
     Route: 065
     Dates: start: 2011
  2. AZATHIOPRINE. [Suspect]
     Active Substance: AZATHIOPRINE
     Indication: IMMUNOSUPPRESSANT DRUG THERAPY
     Route: 065
     Dates: start: 2011
  3. TACROLIMUS. [Suspect]
     Active Substance: TACROLIMUS
     Indication: IMMUNOSUPPRESSANT DRUG THERAPY
     Route: 065
     Dates: start: 2011

REACTIONS (6)
  - Cavernous sinus thrombosis [Unknown]
  - Carotid artery aneurysm [Fatal]
  - Meningitis cryptococcal [Fatal]
  - Cellulitis orbital [Unknown]
  - Subarachnoid haemorrhage [Fatal]
  - Mucormycosis [Fatal]
